FAERS Safety Report 10249978 (Version 1)
Quarter: 2014Q2

REPORT INFORMATION
  Report Type: Spontaneous
  Country: US (occurrence: US)
  Receive Date: 20140620
  Receipt Date: 20140620
  Transmission Date: 20141212
  Serious: Yes (Death, Other)
  Sender: FDA-Public Use
  Company Number: US-PFIZER INC-2014165808

PATIENT
  Sex: 0

DRUGS (1)
  1. AROMASIN [Suspect]
     Dosage: UNK

REACTIONS (1)
  - Myocardial infarction [Fatal]
